FAERS Safety Report 8421018-8 (Version None)
Quarter: 2012Q2

REPORT INFORMATION
  Report Type: 
  Country: None (occurrence: None)
  Receive Date: 20120604
  Receipt Date: 20120604
  Transmission Date: 20120825
  Serious: No
  Sender: FDA-Public Use
  Company Number: None

PATIENT
  Age: 65 Year
  Sex: Male
  Weight: 83.9154 kg

DRUGS (6)
  1. GLIPIZIDE [Concomitant]
  2. GABAPENTIN [Suspect]
     Indication: NECK PAIN
     Dosage: 600 MG 3 TIMES A DAY PO
     Route: 048
  3. PLAVIX [Concomitant]
  4. SLOW NIACIN [Concomitant]
  5. METFORMIN HCL [Concomitant]
  6. LISINOPRIL [Concomitant]

REACTIONS (4)
  - PARALYSIS [None]
  - MUSCLE SPASMS [None]
  - NEUROPATHY PERIPHERAL [None]
  - HYPOAESTHESIA [None]
